FAERS Safety Report 15538999 (Version 2)
Quarter: 2018Q4

REPORT INFORMATION
  Report Type: Report from Study
  Country: US (occurrence: US)
  Receive Date: 20181022
  Receipt Date: 20181106
  Transmission Date: 20190205
  Serious: Yes (Hospitalization, Other)
  Sender: FDA-Public Use
  Company Number: US-SHIRE-US201840371

PATIENT
  Age: 52 Year
  Sex: Male

DRUGS (1)
  1. GATTEX [Suspect]
     Active Substance: TEDUGLUTIDE\WATER
     Indication: MALABSORPTION
     Dosage: 0.42 ML, 1X/DAY:QD
     Route: 058
     Dates: start: 20171220

REACTIONS (5)
  - Localised infection [Unknown]
  - Vascular device infection [Recovering/Resolving]
  - Thrombosis [Unknown]
  - Cellulitis [Unknown]
  - Weight increased [Recovering/Resolving]

NARRATIVE: CASE EVENT DATE: 20181016
